FAERS Safety Report 23979030 (Version 1)
Quarter: 2024Q2

REPORT INFORMATION
  Report Type: Spontaneous
  Country: US (occurrence: US)
  Receive Date: 20240615
  Receipt Date: 20240615
  Transmission Date: 20240716
  Serious: Yes (Hospitalization, Other)
  Sender: FDA-Public Use
  Company Number: US-MLMSERVICE-20240528-PI076660-00117-1

PATIENT
  Age: 74 Year
  Sex: Female

DRUGS (4)
  1. METHOTREXATE [Suspect]
     Active Substance: METHOTREXATE
     Indication: Pulmonary sarcoidosis
     Dosage: 25 MILLIGRAM, EVERY WEEK
     Route: 048
  2. PREDNISONE [Suspect]
     Active Substance: PREDNISONE
     Indication: Uveitis
     Dosage: 60 MILLIGRAM
     Route: 048
  3. DEXAMETHASONE [Suspect]
     Active Substance: DEXAMETHASONE
     Indication: Uveitis
     Dosage: UNK
  4. PREDNISOLONE [Concomitant]
     Active Substance: PREDNISOLONE
     Indication: Uveitis
     Dosage: UNK
     Route: 061

REACTIONS (5)
  - Mycotic endophthalmitis [Recovered/Resolved]
  - Uveitis [Recovered/Resolved]
  - Sarcoidosis [Recovered/Resolved]
  - Aspergillus infection [Recovered/Resolved]
  - Condition aggravated [Recovered/Resolved]
